FAERS Safety Report 8058283-5 (Version None)
Quarter: 2012Q1

REPORT INFORMATION
  Report Type: 
  Country: None (occurrence: None)
  Receive Date: 20120120
  Receipt Date: 20120117
  Transmission Date: 20120608
  Serious: No
  Sender: FDA-Public Use
  Company Number: US-PFIZER INC-2012013644

PATIENT
  Sex: Female
  Weight: 43.537 kg

DRUGS (6)
  1. PREMARIN [Suspect]
     Indication: BONE MARROW DISORDER
  2. PREMARIN [Suspect]
     Indication: OSTEOPOROSIS
  3. ACETAMINOPHEN [Concomitant]
     Dosage: UNK
  4. PREMARIN [Suspect]
     Indication: OFF LABEL USE
  5. PREMARIN [Suspect]
     Indication: PREMATURE MENOPAUSE
     Dosage: 0.625 MG, 1X/DAY
     Route: 048
     Dates: start: 19890101
  6. VITAMIN B-12 [Concomitant]
     Dosage: UNK

REACTIONS (6)
  - GASTROINTESTINAL DISORDER [None]
  - NAUSEA [None]
  - MALAISE [None]
  - PRURITUS [None]
  - DIARRHOEA [None]
  - ORAL PAIN [None]
